FAERS Safety Report 7749634-7 (Version None)
Quarter: 2011Q3

REPORT INFORMATION
  Report Type: 
  Country: None (occurrence: None)
  Receive Date: 20110914
  Receipt Date: 20110905
  Transmission Date: 20111222
  Serious: Yes (Other)
  Sender: FDA-Public Use
  Company Number: US-SANOFI-AVENTIS-2011SA041100

PATIENT
  Age: 73 Year
  Sex: Male
  Weight: 88.5 kg

DRUGS (6)
  1. OPTICLICK [Suspect]
     Indication: TYPE 2 DIABETES MELLITUS
     Dates: end: 20110401
  2. SOLOSTAR [Suspect]
     Dates: start: 20110627
  3. ALL OTHER THERAPEUTIC PRODUCTS [Concomitant]
  4. SOLOSTAR [Suspect]
     Indication: TYPE 2 DIABETES MELLITUS
     Dates: start: 20110407, end: 20110625
  5. LANTUS [Suspect]
     Dosage: DOSE:24 UNIT(S)
     Route: 058
     Dates: start: 20110627
  6. LANTUS [Suspect]
     Indication: TYPE 2 DIABETES MELLITUS
     Dosage: 22- 24 UNITS DOSE:24 UNIT(S)
     Route: 058
     Dates: start: 20110407, end: 20110625

REACTIONS (3)
  - RETINAL DETACHMENT [None]
  - BLOOD GLUCOSE INCREASED [None]
  - PRODUCT QUALITY ISSUE [None]
